FAERS Safety Report 9403712 (Version 1)
Quarter: 2013Q3

REPORT INFORMATION
  Report Type: Spontaneous
  Country: US (occurrence: None)
  Receive Date: 20130715
  Receipt Date: 20130715
  Transmission Date: 20140515
  Serious: Yes (Other)
  Sender: FDA-Public Use
  Company Number: None

PATIENT
  Age: 56 Year
  Sex: Male

DRUGS (1)
  1. RIBAVIRIN [Suspect]
     Indication: HEPATITIS C
     Dosage: 600MG DAILY PO
     Route: 048
     Dates: start: 20130104, end: 20130615

REACTIONS (3)
  - Rash [None]
  - Secretion discharge [None]
  - Burning sensation [None]
